FAERS Safety Report 7733291-X (Version None)
Quarter: 2011Q3

REPORT INFORMATION
  Report Type: 
  Country: None (occurrence: None)
  Receive Date: 20110902
  Receipt Date: 20110902
  Transmission Date: 20111222
  Serious: Yes (Life-Threatening, Other)
  Sender: FDA-Public Use
  Company Number: None

PATIENT
  Sex: Female
  Weight: 90.7194 kg

DRUGS (1)
  1. CEPHALEXIN [Suspect]
     Indication: SINUSITIS
     Dosage: (1) 500 MG 3X DAY ORAL
     Route: 048
     Dates: start: 20110721, end: 20110805

REACTIONS (4)
  - IMMUNE SYSTEM DISORDER [None]
  - FATIGUE [None]
  - MUSCULAR WEAKNESS [None]
  - DECREASED APPETITE [None]
